FAERS Safety Report 6907963-0 (Version None)
Quarter: 2010Q3

REPORT INFORMATION
  Report Type: 
  Country: None (occurrence: None)
  Receive Date: 20100712
  Receipt Date: 20100409
  Transmission Date: 20110219
  Serious: No
  Sender: FDA-Public Use
  Company Number: US-000058

PATIENT
  Sex: Female
  Weight: 63.5036 kg

DRUGS (2)
  1. KUVAN [Suspect]
     Indication: PHENYLKETONURIA
     Dosage: 1400 MG QD ORAL
     Route: 048
     Dates: start: 20100212, end: 20100201
  2. BENAZEPRIL HYDROCHLORIDE [Concomitant]

REACTIONS (1)
  - DIARRHOEA [None]
